FAERS Safety Report 6539429-4 (Version None)
Quarter: 2010Q1

REPORT INFORMATION
  Report Type: 
  Country: None (occurrence: None)
  Receive Date: 20100112
  Receipt Date: 20090211
  Transmission Date: 20100710
  Serious: Yes (Hospitalization)
  Sender: FDA-Public Use
  Company Number: WAES 0902USA01957

PATIENT
  Age: 75 Year
  Sex: Male

DRUGS (3)
  1. DECADRON [Suspect]
     Indication: NAUSEA
     Dosage: PO
     Route: 048
     Dates: start: 20080901, end: 20090202
  2. NEXIUM [Concomitant]
  3. ANTINEOPLASTIC [Concomitant]

REACTIONS (1)
  - HICCUPS [None]
